FAERS Safety Report 7232963-3 (Version None)
Quarter: 2011Q1

REPORT INFORMATION
  Report Type: 
  Country: None (occurrence: None)
  Receive Date: 20110119
  Receipt Date: 20110104
  Transmission Date: 20110831
  Serious: Yes (Hospitalization, Other)
  Sender: FDA-Public Use
  Company Number: US-ACTELION-A-US2010-42785

PATIENT

DRUGS (4)
  1. REVATIO [Concomitant]
  2. TRACLEER [Suspect]
     Indication: PULMONARY ARTERIAL HYPERTENSION
     Dosage: 62.5 MG, BID
     Route: 048
     Dates: start: 20090601
  3. EPOPROSTENOL SODIUM [Suspect]
     Indication: PULMONARY ARTERIAL HYPERTENSION
     Dosage: 20.25 NG/KG, PER MIN
     Route: 041
     Dates: start: 20100730
  4. TRACLEER [Suspect]
     Dosage: 62.5 MG, BID
     Route: 048
     Dates: start: 20101130, end: 20101210

REACTIONS (7)
  - ANAEMIA [None]
  - RED BLOOD CELL COUNT DECREASED [None]
  - FATIGUE [None]
  - NAUSEA [None]
  - DIARRHOEA [None]
  - VOMITING [None]
  - PACKED RED BLOOD CELL TRANSFUSION [None]
